FAERS Safety Report 9796046 (Version 1)
Quarter: 2014Q1

REPORT INFORMATION
  Report Type: Spontaneous
  Country: FR (occurrence: FR)
  Receive Date: 20140103
  Receipt Date: 20140103
  Transmission Date: 20141002
  Serious: Yes (Hospitalization)
  Sender: FDA-Public Use
  Company Number: FR-PFIZER INC-2013373504

PATIENT
  Age: 3 Year
  Sex: Female

DRUGS (3)
  1. ADVIL ENFANTS ET NOURRISSONS [Suspect]
     Indication: PYREXIA
     Dosage: 1 DF, EVERY 4 HRS
     Route: 048
     Dates: start: 20131012, end: 20131021
  2. AUGMENTIN [Concomitant]
     Indication: PYREXIA
  3. DOLIPRANE [Concomitant]
     Indication: PYREXIA

REACTIONS (3)
  - Condition aggravated [Recovered/Resolved]
  - Pneumonia [Recovered/Resolved]
  - Pleurisy [Recovered/Resolved]
